FAERS Safety Report 7245819-7 (Version None)
Quarter: 2011Q1

REPORT INFORMATION
  Report Type: 
  Country: None (occurrence: None)
  Receive Date: 20110126
  Receipt Date: 20110117
  Transmission Date: 20110831
  Serious: Yes (Death, Hospitalization, Other)
  Sender: FDA-Public Use
  Company Number: JP-ACTELION-A-CH2011-44013

PATIENT
  Sex: Male
  Weight: 73 kg

DRUGS (3)
  1. BOSENTAN TABLET 62.5 MG JPN [Suspect]
     Indication: PULMONARY HYPERTENSION
     Dosage: 125 MG, BID
     Route: 048
     Dates: start: 20100818, end: 20101120
  2. OXYGEN [Concomitant]
  3. ENALAPRIL [Concomitant]

REACTIONS (4)
  - LIVER DISORDER [None]
  - CARDIAC FAILURE [None]
  - ASPARTATE AMINOTRANSFERASE INCREASED [None]
  - ALANINE AMINOTRANSFERASE INCREASED [None]
